FAERS Safety Report 18906854 (Version 1)
Quarter: 2021Q1

REPORT INFORMATION
  Report Type: Spontaneous
  Country: IT (occurrence: IT)
  Receive Date: 20210217
  Receipt Date: 20210217
  Transmission Date: 20210420
  Serious: Yes (Hospitalization)
  Sender: FDA-Public Use
  Company Number: IT-PFIZER INC-2021142161

PATIENT
  Age: 40 Year
  Sex: Female

DRUGS (4)
  1. GABAPENTIN. [Suspect]
     Active Substance: GABAPENTIN
     Indication: PERSONALITY DISORDER
     Dosage: 1 DF, TOTAL
     Route: 048
     Dates: start: 20190930, end: 20190930
  2. CLOPIXOL [ZUCLOPENTHIXOL HYDROCHLORIDE] [Suspect]
     Active Substance: ZUCLOPENTHIXOL HYDROCHLORIDE
     Indication: PERSONALITY DISORDER
     Dosage: 40 DROP, TOTAL
     Route: 048
     Dates: start: 20190930, end: 20190930
  3. VALDORM [FLURAZEPAM HYDROCHLORIDE] [Suspect]
     Active Substance: FLURAZEPAM HYDROCHLORIDE
     Indication: PERSONALITY DISORDER
     Dosage: 30 DF, TOTAL
     Route: 048
     Dates: start: 20190930, end: 20190930
  4. VALIUM [Suspect]
     Active Substance: DIAZEPAM
     Indication: PERSONALITY DISORDER
     Dosage: 230 DROP, TOTAL
     Route: 048
     Dates: start: 20190930, end: 20190930

REACTIONS (5)
  - Off label use [Unknown]
  - Intentional self-injury [Recovering/Resolving]
  - Sopor [Recovering/Resolving]
  - Condition aggravated [Recovering/Resolving]
  - Drug abuse [Recovering/Resolving]

NARRATIVE: CASE EVENT DATE: 20190930
